FAERS Safety Report 13955334 (Version 1)
Quarter: 2017Q3

REPORT INFORMATION
  Report Type: Spontaneous
  Country: DE (occurrence: DE)
  Receive Date: 20170911
  Receipt Date: 20170911
  Transmission Date: 20171128
  Serious: Yes (Other)
  Sender: FDA-Public Use
  Company Number: DE-ENDO PHARMACEUTICALS INC-2017-004859

PATIENT
  Age: 51 Year
  Sex: Male
  Weight: 85 kg

DRUGS (6)
  1. AVEED [Suspect]
     Active Substance: TESTOSTERONE UNDECANOATE
     Indication: OSTEOPOROSIS
  2. AVEED [Suspect]
     Active Substance: TESTOSTERONE UNDECANOATE
     Indication: ANDROGEN DEFICIENCY
     Dosage: UNK MG, REGIMEN 1
     Route: 065
  3. TESTOTOP [Suspect]
     Active Substance: TESTOSTERONE
     Indication: ANDROGEN DEFICIENCY
     Dosage: 125 MG, UNKNOWN
     Route: 065
     Dates: end: 2015
  4. TESTOGEL [Suspect]
     Active Substance: TESTOSTERONE
     Indication: ANDROGEN DEFICIENCY
     Dosage: 50 MG, REGIMEN 1
     Route: 065
     Dates: start: 2010, end: 2015
  5. TESTOTOP [Suspect]
     Active Substance: TESTOSTERONE
     Indication: OSTEOPOROSIS
  6. TESTOGEL [Suspect]
     Active Substance: TESTOSTERONE
     Indication: OSTEOPOROSIS
     Dosage: 50 MG, REGIMEN 2
     Route: 062
     Dates: start: 20170701

REACTIONS (17)
  - Head discomfort [Unknown]
  - Head injury [Recovered/Resolved]
  - Product use in unapproved indication [Unknown]
  - Meningioma [Unknown]
  - Seizure [Recovered/Resolved]
  - Arrhythmia [Recovered/Resolved]
  - Fall [Recovered/Resolved]
  - Seizure [Recovered/Resolved]
  - Rosacea [Not Recovered/Not Resolved]
  - Epilepsy [Not Recovered/Not Resolved]
  - Flushing [Not Recovered/Not Resolved]
  - Acne [Not Recovered/Not Resolved]
  - Epilepsy [Recovered/Resolved]
  - Hypertension [Recovered/Resolved]
  - Hepatic enzyme increased [Recovered/Resolved]
  - Blood pressure increased [Unknown]
  - Syncope [Recovered/Resolved]

NARRATIVE: CASE EVENT DATE: 2014
